FAERS Safety Report 14700958 (Version 3)
Quarter: 2018Q2

REPORT INFORMATION
  Report Type: Spontaneous
  Country: US (occurrence: US)
  Receive Date: 20180330
  Receipt Date: 20180611
  Transmission Date: 20180711
  Serious: No
  Sender: FDA-Public Use
  Company Number: PHEH2018US012235

PATIENT
  Sex: Female

DRUGS (1)
  1. TASIGNA [Suspect]
     Active Substance: NILOTINIB
     Indication: PRODUCT USED FOR UNKNOWN INDICATION
     Dosage: UNK UNK, BID (EVERY 12 HOURS)
     Route: 048

REACTIONS (6)
  - Musculoskeletal stiffness [Unknown]
  - Fatigue [Unknown]
  - Thyroid disorder [Unknown]
  - Sleep disorder [Unknown]
  - Paraesthesia [Unknown]
  - Pain in extremity [Recovered/Resolved]
